FAERS Safety Report 24157282 (Version 1)
Quarter: 2024Q3

REPORT INFORMATION
  Report Type: Spontaneous
  Country: US (occurrence: US)
  Receive Date: 20240731
  Receipt Date: 20240731
  Transmission Date: 20241016
  Serious: No
  Sender: SANOFI AVENTIS
  Company Number: US-SA-2024SA217253

PATIENT
  Sex: Male

DRUGS (2)
  1. DUPIXENT [Suspect]
     Active Substance: DUPILUMAB
     Indication: Dermatitis atopic
     Dosage: 300 MG, Q3W
     Route: 058
  2. ERLEADA [Concomitant]
     Active Substance: APALUTAMIDE
     Dosage: UNK

REACTIONS (3)
  - Constipation [Unknown]
  - Faeces hard [Unknown]
  - Inappropriate schedule of product administration [Unknown]
